FAERS Safety Report 15338268 (Version 1)
Quarter: 2018Q3

REPORT INFORMATION
  Report Type: Spontaneous
  Country: US (occurrence: US)
  Receive Date: 20180831
  Receipt Date: 20180831
  Transmission Date: 20181010
  Serious: Yes (Death, Other)
  Sender: FDA-Public Use
  Company Number: US-IRONWOOD PHARMACEUTICALS, INC.-IRWD2018002892

PATIENT
  Age: 37 Year
  Sex: Male

DRUGS (2)
  1. FEBUXOSTAT. [Concomitant]
     Active Substance: FEBUXOSTAT
     Dosage: 80 MG, UNK
     Route: 065
  2. ZURAMPIC [Suspect]
     Active Substance: LESINURAD
     Indication: HYPERURICAEMIA
     Dosage: 200 MG, QD
     Route: 048
     Dates: start: 201802, end: 201806

REACTIONS (3)
  - Dyspnoea [Unknown]
  - Cardiac failure congestive [Unknown]
  - Death [Fatal]

NARRATIVE: CASE EVENT DATE: 201806
